FAERS Safety Report 6138067-5 (Version None)
Quarter: 2009Q1

REPORT INFORMATION
  Report Type: 
  Country: None (occurrence: None)
  Receive Date: 20090327
  Receipt Date: 20090327
  Transmission Date: 20090719
  Serious: Yes (Hospitalization, Other)
  Sender: FDA-Public Use
  Company Number: None

PATIENT
  Sex: Female
  Weight: 70.3075 kg

DRUGS (2)
  1. METOCLOPRAMIDE 5 MG [Suspect]
     Indication: NAUSEA
     Dosage: 1 TABLET -5 MG- TWICE DAILY PO
     Route: 048
     Dates: start: 20060215, end: 20060510
  2. METOCLOPRAMIDE 5 MG [Suspect]
     Indication: VOMITING
     Dosage: 1 TABLET -5 MG- TWICE DAILY PO
     Route: 048
     Dates: start: 20060215, end: 20060510

REACTIONS (21)
  - ABDOMINAL DISTENSION [None]
  - BURNOUT SYNDROME [None]
  - CONFUSIONAL STATE [None]
  - COORDINATION ABNORMAL [None]
  - DYSKINESIA [None]
  - EMOTIONAL DISORDER [None]
  - FATIGUE [None]
  - FEAR OF FALLING [None]
  - FLUID RETENTION [None]
  - GAIT DISTURBANCE [None]
  - HOT FLUSH [None]
  - IMPAIRED DRIVING ABILITY [None]
  - IMPAIRED WORK ABILITY [None]
  - MENTAL DISORDER [None]
  - MULTIPLE SCLEROSIS [None]
  - MUSCLE SPASMS [None]
  - NIGHT SWEATS [None]
  - NOCTURIA [None]
  - PALPITATIONS [None]
  - WEIGHT INCREASED [None]
  - WHEELCHAIR USER [None]
